FAERS Safety Report 11963260 (Version 1)
Quarter: 2016Q1

REPORT INFORMATION
  Report Type: Report from Study
  Country: US (occurrence: US)
  Receive Date: 20160126
  Receipt Date: 20160126
  Transmission Date: 20160526
  Serious: No
  Sender: FDA-Public Use
  Company Number: US-ABBVIE-15K-163-1384409-00

PATIENT
  Age: 66 Year
  Sex: Female
  Weight: 64.47 kg

DRUGS (4)
  1. TRAMADOL. [Concomitant]
     Active Substance: TRAMADOL
     Indication: PSORIATIC ARTHROPATHY
  2. VOLTAREN [Concomitant]
     Active Substance: DICLOFENAC SODIUM
     Indication: PSORIATIC ARTHROPATHY
  3. FLEXERIL [Concomitant]
     Active Substance: CYCLOBENZAPRINE HYDROCHLORIDE
     Indication: PSORIATIC ARTHROPATHY
  4. HUMIRA [Suspect]
     Active Substance: ADALIMUMAB
     Indication: PSORIATIC ARTHROPATHY
     Route: 065
     Dates: start: 201503

REACTIONS (1)
  - Gingival erythema [Not Recovered/Not Resolved]

NARRATIVE: CASE EVENT DATE: 201503
